FAERS Safety Report 6525007-X (Version None)
Quarter: 2010Q1

REPORT INFORMATION
  Report Type: 
  Country: None (occurrence: None)
  Receive Date: 20100104
  Receipt Date: 20091222
  Transmission Date: 20100710
  Serious: Yes (Life-Threatening, Hospitalization)
  Sender: FDA-Public Use
  Company Number: TW-PFIZER INC-2009313340

PATIENT
  Age: 36 Year
  Sex: Female
  Weight: 50.8 kg

DRUGS (1)
  1. SUNITINIB MALATE [Suspect]
     Indication: HEPATIC NEOPLASM MALIGNANT NON-RESECTABLE
     Dosage: 37.5 MG, 1X/DAY
     Route: 048
     Dates: start: 20090430, end: 20091219

REACTIONS (1)
  - HEPATIC FUNCTION ABNORMAL [None]
